FAERS Safety Report 10530210 (Version 2)
Quarter: 2014Q4

REPORT INFORMATION
  Report Type: Spontaneous
  Country: JP (occurrence: JP)
  Receive Date: 20141021
  Receipt Date: 20141124
  Transmission Date: 20150528
  Serious: Yes (Hospitalization, Other)
  Sender: FDA-Public Use
  Company Number: JP-UCBSA-2014015049

PATIENT
  Age: 9 Month
  Sex: Male

DRUGS (1)
  1. XYZAL [Suspect]
     Active Substance: LEVOCETIRIZINE DIHYDROCHLORIDE
     Indication: URTICARIA
     Dosage: UNKNOWN DOSE AND FREQUENCY; SYRUP
     Route: 048
     Dates: start: 20140924, end: 20140926

REACTIONS (4)
  - Tremor [Recovered/Resolved]
  - Urinary retention [Recovered/Resolved]
  - Cold sweat [Recovered/Resolved]
  - Peripheral coldness [Recovered/Resolved]

NARRATIVE: CASE EVENT DATE: 20140924
